FAERS Safety Report 8570201-X (Version None)
Quarter: 2012Q3

REPORT INFORMATION
  Report Type: 
  Country: None (occurrence: None)
  Receive Date: 20120803
  Receipt Date: 20120725
  Transmission Date: 20120928
  Serious: No
  Sender: FDA-Public Use
  Company Number: US-B.I. PHARMACEUTICALS,INC./RIDGEFIELD-2012-BP-16575BP

PATIENT
  Sex: Male

DRUGS (1)
  1. MELOXICAM [Suspect]
     Route: 048
     Dates: start: 20120501, end: 20120720

REACTIONS (2)
  - SKIN ULCER [None]
  - PRURITUS [None]
